FAERS Safety Report 4976542-7 (Version None)
Quarter: 2006Q2

REPORT INFORMATION
  Report Type: 
  Country: None (occurrence: None)
  Receive Date: 20060419
  Receipt Date: 20050711
  Transmission Date: 20061013
  Serious: Yes (Hospitalization, Disabling)
  Sender: FDA-Public Use
  Company Number: US-MERCK-0507USA01500

PATIENT
  Age: 54 Year
  Sex: Female
  Weight: 61 kg

DRUGS (10)
  1. VIOXX [Suspect]
     Indication: PAIN
     Route: 048
     Dates: start: 20001020, end: 20030713
  2. ALLEGRA [Concomitant]
     Route: 065
  3. XANAX [Concomitant]
     Route: 065
  4. XANAX [Concomitant]
     Route: 065
  5. OXYCONTIN [Concomitant]
     Route: 065
  6. LOTREL [Concomitant]
     Route: 065
  7. ATENOLOL [Concomitant]
     Route: 065
  8. FOSAMAX [Concomitant]
     Route: 065
  9. EFFEXOR [Concomitant]
     Route: 065
  10. PREMARIN [Suspect]
     Route: 065

REACTIONS (19)
  - CEREBRAL INFARCTION [None]
  - CEREBROVASCULAR ACCIDENT [None]
  - CHEST DISCOMFORT [None]
  - DEHYDRATION [None]
  - DIARRHOEA [None]
  - DIZZINESS [None]
  - FALL [None]
  - HEADACHE [None]
  - HYPOAESTHESIA [None]
  - NAUSEA [None]
  - NECK PAIN [None]
  - OEDEMA PERIPHERAL [None]
  - PAIN IN EXTREMITY [None]
  - PALPITATIONS [None]
  - PARAESTHESIA [None]
  - TACHYCARDIA [None]
  - TRICUSPID VALVE INCOMPETENCE [None]
  - VISION BLURRED [None]
  - VOMITING [None]
